FAERS Safety Report 11704646 (Version 1)
Quarter: 2015Q4

REPORT INFORMATION
  Report Type: Spontaneous
  Country: US (occurrence: US)
  Receive Date: 20151106
  Receipt Date: 20151106
  Transmission Date: 20160304
  Serious: Yes (Other)
  Sender: FDA-Public Use
  Company Number: US-BAYER-2015-453169

PATIENT

DRUGS (2)
  1. BAYER GENUINE ASPIRIN [Suspect]
     Active Substance: ASPIRIN
     Indication: MYALGIA
     Dosage: 4 DF, ONCE
     Dates: start: 20151023
  2. ALEVE [Suspect]
     Active Substance: NAPROXEN SODIUM
     Indication: MYALGIA
     Dosage: 4 DF, ONCE
     Dates: start: 20151023

REACTIONS (5)
  - Head injury [None]
  - Product use issue [None]
  - Loss of consciousness [None]
  - Drug ineffective [None]
  - Haemorrhage [None]
